FAERS Safety Report 11080905 (Version 1)
Quarter: 2015Q2

REPORT INFORMATION
  Report Type: Spontaneous
  Country: FR (occurrence: FR)
  Receive Date: 20150501
  Receipt Date: 20150501
  Transmission Date: 20150821
  Serious: Yes (Death, Other)
  Sender: FDA-Public Use
  Company Number: FR-CELGENE-FRA-2015044632

PATIENT

DRUGS (2)
  1. GEMCITABINE [Concomitant]
     Active Substance: GEMCITABINE\GEMCITABINE HYDROCHLORIDE
     Indication: ADENOCARCINOMA PANCREAS
     Route: 065
     Dates: start: 201405, end: 201502
  2. ABRAXANE [Suspect]
     Active Substance: PACLITAXEL
     Indication: ADENOCARCINOMA PANCREAS
     Dosage: 125 MILLIGRAM/SQ. METER
     Route: 058
     Dates: start: 201405, end: 201502

REACTIONS (10)
  - Quality of life decreased [Unknown]
  - Haematotoxicity [Unknown]
  - Cholangitis [Unknown]
  - Adenocarcinoma pancreas [Unknown]
  - Diarrhoea [Unknown]
  - Neutropenia [Unknown]
  - Fatigue [Unknown]
  - Asthenia [Unknown]
  - Death [Fatal]
  - Thrombocytopenia [Unknown]
